FAERS Safety Report 17408375 (Version 1)
Quarter: 2020Q1

REPORT INFORMATION
  Report Type: Report from Study
  Country: GB (occurrence: GB)
  Receive Date: 20200212
  Receipt Date: 20200212
  Transmission Date: 20200409
  Serious: Yes (Other)
  Sender: FDA-Public Use
  Company Number: NVSC2019GB019392

PATIENT
  Sex: Female

DRUGS (1)
  1. HYRIMOZ [Suspect]
     Active Substance: ADALIMUMAB-ADAZ
     Indication: BEHCET^S SYNDROME
     Dosage: 1 DF, Q2W
     Route: 058
     Dates: start: 20190726

REACTIONS (4)
  - Product use in unapproved indication [Unknown]
  - Behcet^s syndrome [Unknown]
  - Skin ulcer [Unknown]
  - Skin disorder [Unknown]
